FAERS Safety Report 9743572 (Version 1)
Quarter: 2013Q4

REPORT INFORMATION
  Report Type: Spontaneous
  Country: DE (occurrence: DE)
  Receive Date: 20131210
  Receipt Date: 20131210
  Transmission Date: 20140711
  Serious: Yes (Congenital Anomaly, Other)
  Sender: FDA-Public Use
  Company Number: DE-TEVA-447966GER

PATIENT
  Age: 1 Day
  Sex: Male

DRUGS (6)
  1. DIAZEPAM [Suspect]
     Route: 064
  2. SEROQUEL [Suspect]
     Route: 064
  3. HALDOL [Suspect]
     Route: 064
  4. AKINETON [Suspect]
     Route: 064
  5. CITALOPRAM [Concomitant]
     Route: 064
  6. ABILIFY [Concomitant]
     Route: 064

REACTIONS (8)
  - Opisthotonus [Recovering/Resolving]
  - Neonatal respiratory distress syndrome [Recovered/Resolved]
  - Small for dates baby [Not Recovered/Not Resolved]
  - Feeding disorder neonatal [Recovered/Resolved]
  - Patent ductus arteriosus [Unknown]
  - Retrognathia [Not Recovered/Not Resolved]
  - Atrial septal defect [Unknown]
  - Syndactyly [Not Recovered/Not Resolved]
